FAERS Safety Report 9474619 (Version 1)
Quarter: 2013Q3

REPORT INFORMATION
  Report Type: Spontaneous
  Country: US (occurrence: US)
  Receive Date: 20130823
  Receipt Date: 20130823
  Transmission Date: 20140515
  Serious: Yes (Other)
  Sender: FDA-Public Use
  Company Number: US-BRISTOL-MYERS SQUIBB COMPANY-19188374

PATIENT
  Sex: Female

DRUGS (4)
  1. ABILIFY [Suspect]
     Dosage: RESTARTED:2 MG
  2. LYRICA [Suspect]
  3. TOPIRAMATE [Concomitant]
  4. SEROQUEL [Concomitant]
     Indication: SLEEP DISORDER

REACTIONS (2)
  - Mania [Unknown]
  - Weight decreased [Unknown]
